FAERS Safety Report 4838298-8 (Version None)
Quarter: 2005Q4

REPORT INFORMATION
  Report Type: 
  Country: None (occurrence: None)
  Receive Date: 20051123
  Receipt Date: 20051111
  Transmission Date: 20060501
  Serious: Yes (Other)
  Sender: FDA-Public Use
  Company Number: 219416

PATIENT
  Sex: Female

DRUGS (5)
  1. RITUXAN [Suspect]
     Indication: MANTLE CELL LYMPHOMA
  2. CYCLOPHOSPHAMIDE [Concomitant]
  3. VINCRISTINE [Concomitant]
  4. DOXORUBICIN HYDROCHLORIDE [Concomitant]
  5. PREDNISONE [Concomitant]

REACTIONS (2)
  - ANAPHYLACTIC SHOCK [None]
  - MANTLE CELL LYMPHOMA RECURRENT [None]
